FAERS Safety Report 26218329 (Version 1)
Quarter: 2025Q4

REPORT INFORMATION
  Report Type: Report from Study
  Country: EG (occurrence: EG)
  Receive Date: 20251231
  Receipt Date: 20251231
  Transmission Date: 20260118
  Serious: Yes (Death, Other)
  Sender: PFIZER
  Company Number: EG-TAKEDA-2025TUS119108

PATIENT
  Age: 57 Year
  Sex: Female

DRUGS (1)
  1. ADCETRIS [Suspect]
     Active Substance: BRENTUXIMAB VEDOTIN
     Indication: Cutaneous T-cell lymphoma
     Dosage: 100 MG, EVERY 3 WEEKS
     Route: 042
     Dates: start: 20250401, end: 20251130

REACTIONS (1)
  - Death [Fatal]

NARRATIVE: CASE EVENT DATE: 20251220
